FAERS Safety Report 9461708 (Version 1)
Quarter: 2013Q3

REPORT INFORMATION
  Report Type: Spontaneous
  Country: US (occurrence: None)
  Receive Date: 20130815
  Receipt Date: 20130815
  Transmission Date: 20140515
  Serious: No
  Sender: FDA-Public Use
  Company Number: None

PATIENT
  Age: 56 Year
  Sex: Female
  Weight: 63.5 kg

DRUGS (9)
  1. PRAZOSIN 1MG MYLAN 101 [Suspect]
     Indication: SLEEP DISORDER
     Route: 048
     Dates: start: 20130813, end: 20130814
  2. ZOLOFT [Concomitant]
  3. KLONOPIN [Concomitant]
  4. FLEXERAL [Concomitant]
  5. VICODIN [Concomitant]
  6. CALCIUM [Concomitant]
  7. MAGNESIUM [Concomitant]
  8. ZINC WITH VITAMIN D3 [Concomitant]
  9. VITAMIN C WITH NATURAL ROSE HIPS [Concomitant]

REACTIONS (8)
  - Headache [None]
  - Abnormal sensation in eye [None]
  - Sensation of heaviness [None]
  - Palpitations [None]
  - Chest discomfort [None]
  - Dyspnoea [None]
  - Panic attack [None]
  - Fatigue [None]
